FAERS Safety Report 20062477 (Version 2)
Quarter: 2021Q4

REPORT INFORMATION
  Report Type: Spontaneous
  Country: PT (occurrence: PT)
  Receive Date: 20211112
  Receipt Date: 20211227
  Transmission Date: 20220303
  Serious: Yes (Other)
  Sender: FDA-Public Use
  Company Number: PT-009507513-2110PRT006794

PATIENT
  Age: 67 Year
  Sex: Male
  Weight: 67 kg

DRUGS (3)
  1. CARBOPLATIN [Suspect]
     Active Substance: CARBOPLATIN
     Indication: Product used for unknown indication
     Dosage: 6 AUC, CYCLICAL (4 CYCLES)
     Route: 065
     Dates: start: 202105, end: 202109
  2. PACLITAXEL [Suspect]
     Active Substance: PACLITAXEL
     Indication: Product used for unknown indication
     Dosage: 200 MILLIGRAM/SQ. METER, CYCLICAL (4 CYCLES)
     Route: 065
     Dates: start: 202105, end: 202109
  3. PEMBROLIZUMAB [Suspect]
     Active Substance: PEMBROLIZUMAB
     Indication: Product used for unknown indication
     Dosage: 200 MILLIGRAM, Q3W
     Route: 065
     Dates: start: 202105

REACTIONS (10)
  - Blood thyroid stimulating hormone abnormal [Recovered/Resolved]
  - Pulmonary cavitation [Unknown]
  - Blood creatinine abnormal [Unknown]
  - Lymphadenopathy [Recovered/Resolved]
  - Pleural effusion [Unknown]
  - Fatigue [Unknown]
  - Anaemia [Unknown]
  - Alopecia [Unknown]
  - Platelet count decreased [Unknown]
  - White blood cell count decreased [Unknown]

NARRATIVE: CASE EVENT DATE: 20210101
